FAERS Safety Report 16200715 (Version 1)
Quarter: 2019Q2

REPORT INFORMATION
  Report Type: Spontaneous
  Country: FR (occurrence: FR)
  Receive Date: 20190416
  Receipt Date: 20190416
  Transmission Date: 20190711
  Serious: Yes (Hospitalization)
  Sender: FDA-Public Use
  Company Number: FR-TEVA-2019-FR-1037143

PATIENT
  Age: 48 Year
  Sex: Male
  Weight: 84 kg

DRUGS (9)
  1. FLAGYL [Suspect]
     Active Substance: METRONIDAZOLE\METRONIDAZOLE HYDROCHLORIDE
     Indication: INFECTION
     Dosage: 500 MILLIGRAM DAILY;
     Route: 041
     Dates: start: 20190130, end: 20190206
  2. BEVITINE 250 MG, COMPRIM? ENROB? [Suspect]
     Active Substance: THIAMINE HYDROCHLORIDE
     Indication: ALCOHOLISM
     Dosage: 500 MILLIGRAM DAILY;
     Route: 048
     Dates: start: 20190124, end: 20190206
  3. LOVENOX [Suspect]
     Active Substance: ENOXAPARIN SODIUM
     Indication: THROMBOSIS PROPHYLAXIS
     Dosage: 4000 IU (INTERNATIONAL UNIT) DAILY;
     Route: 058
     Dates: start: 20190124, end: 20190206
  4. NICOTINE. [Suspect]
     Active Substance: NICOTINE
     Indication: TOBACCO ABUSE
     Route: 062
     Dates: start: 20190126, end: 20190206
  5. TRAMADOL (CHLORHYDRATE DE) [Suspect]
     Active Substance: TRAMADOL HYDROCHLORIDE
     Indication: PAIN
     Dosage: 2 CP 100 MG LP/JOUR
     Route: 048
     Dates: start: 20190124, end: 20190206
  6. NICOBION [Suspect]
     Active Substance: NIACINAMIDE
     Indication: ALCOHOLISM
     Dosage: 1000 MILLIGRAM DAILY;
     Route: 048
     Dates: start: 20190126, end: 20190203
  7. BECILAN 250 MG, COMPRIM? S?CABLE [Suspect]
     Active Substance: PYRIDOXINE
     Indication: ALCOHOLISM
     Dosage: 500 MILLIGRAM DAILY;
     Route: 048
     Dates: start: 20190124, end: 20190204
  8. ACIDE FOLIQUE [Suspect]
     Active Substance: FOLIC ACID
     Indication: VITAMIN SUPPLEMENTATION
     Dosage: 5 MILLIGRAM DAILY;
     Route: 048
     Dates: start: 20190127, end: 20190204
  9. PHOSPHONEUROS, SOLUTION BUVABLE EN GOUTTES [Suspect]
     Active Substance: CALCIUM PHOSPHATE, DIBASIC, ANHYDROUS\MAGNESIUM GLYCEROPHOSPHATE\PHOSPHORIC ACID\SODIUM PHOSPHATE, DIBASIC
     Indication: BLOOD PHOSPHORUS DECREASED
     Route: 048
     Dates: start: 20190126, end: 20190206

REACTIONS (1)
  - Toxic skin eruption [Recovered/Resolved]

NARRATIVE: CASE EVENT DATE: 20190202
